FAERS Safety Report 23466386 (Version 1)
Quarter: 2024Q1

REPORT INFORMATION
  Report Type: Report from Study
  Country: DE (occurrence: DE)
  Receive Date: 20240201
  Receipt Date: 20240201
  Transmission Date: 20240409
  Serious: Yes (Other)
  Sender: FDA-Public Use
  Company Number: DE-MYLANLABS-2023M1062894

PATIENT
  Sex: Female

DRUGS (1)
  1. GLATIRAMER [Suspect]
     Active Substance: GLATIRAMER
     Indication: Multiple sclerosis
     Dosage: 20 MILLIGRAM PER MILLILITRE
     Route: 065
     Dates: start: 20230605, end: 20231221

REACTIONS (5)
  - Hypoaesthesia [Unknown]
  - Visual impairment [Unknown]
  - Injection site erythema [Recovered/Resolved]
  - Injection site pustule [Recovered/Resolved]
  - Injection site urticaria [Unknown]

NARRATIVE: CASE EVENT DATE: 20230701
